FAERS Safety Report 9028773 (Version 3)
Quarter: 2013Q1

REPORT INFORMATION
  Report Type: Spontaneous
  Country: US (occurrence: US)
  Receive Date: 20130124
  Receipt Date: 20130311
  Transmission Date: 20140127
  Serious: Yes (Other)
  Sender: FDA-Public Use
  Company Number: US-PFIZER INC-2013026499

PATIENT
  Sex: Female
  Weight: 58.96 kg

DRUGS (7)
  1. SUTENT [Suspect]
     Indication: THYROID CANCER
     Dosage: 28 DAYS ON AND 14 DAYS OFF
  2. ZOMETA [Concomitant]
     Dosage: UNK, MONTHLY INFUSION (14 DEC 2012 #8 DOSE)
  3. LEVOTHYROXINE [Concomitant]
     Indication: THYROID THERAPY
     Dosage: UNK
  4. CALTRATE [Concomitant]
     Dosage: UNK
  5. VITAMIN D [Concomitant]
     Dosage: UNK
  6. CALTRATE WITH VITAMIN D [Concomitant]
     Dosage: UNK
  7. GUANFACINE [Concomitant]
     Dosage: UNK

REACTIONS (8)
  - Off label use [Unknown]
  - Blood pressure increased [Recovering/Resolving]
  - Brain injury [Unknown]
  - Memory impairment [Unknown]
  - Pain [Unknown]
  - Palmar-plantar erythrodysaesthesia syndrome [Unknown]
  - Decreased appetite [Recovering/Resolving]
  - Activities of daily living impaired [Unknown]
